FAERS Safety Report 7232882-2 (Version None)
Quarter: 2011Q1

REPORT INFORMATION
  Report Type: 
  Country: None (occurrence: None)
  Receive Date: 20110119
  Receipt Date: 20110113
  Transmission Date: 20110831
  Serious: Yes (Other)
  Sender: FDA-Public Use
  Company Number: BR-PFIZER INC-2011008604

PATIENT
  Age: 39 Year
  Sex: Female
  Weight: 60 kg

DRUGS (1)
  1. DEPO-PROVERA [Suspect]
     Indication: ENDOMETRIOSIS
     Dosage: 150 MG, UNK
     Route: 030
     Dates: start: 20070101

REACTIONS (2)
  - PELVIC PAIN [None]
  - HAEMORRHAGE [None]
